FAERS Safety Report 17259346 (Version 1)
Quarter: 2020Q1

REPORT INFORMATION
  Report Type: Spontaneous
  Country: US (occurrence: US)
  Receive Date: 20200110
  Receipt Date: 20200110
  Transmission Date: 20200409
  Serious: No
  Sender: FDA-Public Use
  Company Number: US-SA-2020SA006724

PATIENT
  Age: 82 Year
  Sex: Female

DRUGS (1)
  1. DUPIXENT [Suspect]
     Active Substance: DUPILUMAB
     Indication: DERMATITIS ATOPIC
     Dosage: 600 MG, 1X
     Dates: start: 20191211, end: 20191211

REACTIONS (7)
  - Pain [Recovered/Resolved]
  - Influenza like illness [Recovered/Resolved]
  - Conjunctival irritation [Recovered/Resolved]
  - Rash [Recovered/Resolved]
  - Mouth ulceration [Recovered/Resolved]
  - Serum sickness [Recovered/Resolved]
  - Oral herpes [Recovered/Resolved]

NARRATIVE: CASE EVENT DATE: 20191211
